FAERS Safety Report 16825169 (Version 1)
Quarter: 2019Q3

REPORT INFORMATION
  Report Type: Spontaneous
  Country: JP (occurrence: JP)
  Receive Date: 20190919
  Receipt Date: 20190919
  Transmission Date: 20191005
  Serious: Yes (Death)
  Sender: FDA-Public Use
  Company Number: JP-INGENUS PHARMACEUTICALS, LLC-2019INF000285

PATIENT
  Age: 66 Year
  Sex: Male

DRUGS (2)
  1. GEMCITABINE HYDROCHLORIDE. [Suspect]
     Active Substance: GEMCITABINE HYDROCHLORIDE
     Indication: SQUAMOUS CELL CARCINOMA OF LUNG
     Dosage: 1000 MILLIGRAM/SQ. METER, DAY 1 AND DAY 8
     Route: 065
  2. CISPLATIN. [Suspect]
     Active Substance: CISPLATIN
     Indication: SQUAMOUS CELL CARCINOMA OF LUNG
     Dosage: 80 MILLIGRAM/SQ. METER, ON DAY 1
     Route: 065

REACTIONS (5)
  - Thrombotic thrombocytopenic purpura [Fatal]
  - Acute respiratory failure [Fatal]
  - Renal impairment [Fatal]
  - Nervous system disorder [Fatal]
  - Microangiopathic haemolytic anaemia [Fatal]
